FAERS Safety Report 9952280 (Version 1)
Quarter: 2014Q1

REPORT INFORMATION
  Report Type: Report from Study
  Country: US (occurrence: US)
  Receive Date: 20140304
  Receipt Date: 20140304
  Transmission Date: 20141002
  Serious: No
  Sender: FDA-Public Use
  Company Number: US-ABBVIE-13P-163-1071818-00

PATIENT
  Age: 19 Year
  Sex: Female

DRUGS (5)
  1. HUMIRA [Suspect]
     Indication: CROHN^S DISEASE
     Dates: start: 20120922
  2. PENTASA [Concomitant]
     Indication: CROHN^S DISEASE
     Dosage: 2 PILLS 3X A DAY
  3. BIRTH CONTROL PILLS [Concomitant]
     Indication: CONTRACEPTION
  4. VICODIN [Concomitant]
     Indication: ABDOMINAL PAIN
  5. OXYCODONE [Concomitant]
     Indication: ABDOMINAL PAIN

REACTIONS (2)
  - Crohn^s disease [Recovering/Resolving]
  - Urticaria [Recovering/Resolving]
